FAERS Safety Report 22355002 (Version 2)
Quarter: 2023Q2

REPORT INFORMATION
  Report Type: Spontaneous
  Country: HU (occurrence: HU)
  Receive Date: 20230523
  Receipt Date: 20230531
  Transmission Date: 20230722
  Serious: Yes (Other)
  Sender: FDA-Public Use
  Company Number: HU-CELLTRION INC.-2023HU010350

PATIENT

DRUGS (13)
  1. RITUXIMAB [Suspect]
     Active Substance: RITUXIMAB
     Indication: Bing-Neel syndrome
     Route: 037
  2. RITUXIMAB [Suspect]
     Active Substance: RITUXIMAB
     Indication: Waldenstrom^s macroglobulinaemia
  3. RITUXIMAB [Suspect]
     Active Substance: RITUXIMAB
     Indication: Bing-Neel syndrome
     Dosage: UNK
     Route: 037
  4. RITUXIMAB [Suspect]
     Active Substance: RITUXIMAB
     Indication: Waldenstrom^s macroglobulinaemia
     Dosage: UNK
     Route: 037
  5. CISPLATIN [Suspect]
     Active Substance: CISPLATIN
     Indication: Waldenstrom^s macroglobulinaemia
  6. CYTARABINE [Suspect]
     Active Substance: CYTARABINE
     Indication: Waldenstrom^s macroglobulinaemia
     Route: 037
  7. CYTARABINE [Suspect]
     Active Substance: CYTARABINE
     Indication: Bing-Neel syndrome
     Route: 037
  8. DEXAMETHASONE [Suspect]
     Active Substance: DEXAMETHASONE
     Indication: Bing-Neel syndrome
     Route: 037
  9. DEXAMETHASONE [Suspect]
     Active Substance: DEXAMETHASONE
     Route: 037
  10. DEXAMETHASONE [Suspect]
     Active Substance: DEXAMETHASONE
     Indication: Waldenstrom^s macroglobulinaemia
     Route: 037
  11. METHOTREXATE [Suspect]
     Active Substance: METHOTREXATE
     Indication: Bing-Neel syndrome
     Route: 037
  12. METHOTREXATE [Suspect]
     Active Substance: METHOTREXATE
     Indication: Waldenstrom^s macroglobulinaemia
     Route: 037
  13. ENTECAVIR [Concomitant]
     Active Substance: ENTECAVIR
     Indication: Hepatitis B reactivation

REACTIONS (3)
  - Arachnoiditis [Recovering/Resolving]
  - Hepatitis B reactivation [Unknown]
  - Intentional product use issue [Unknown]
